FAERS Safety Report 25105342 (Version 1)
Quarter: 2025Q1

REPORT INFORMATION
  Report Type: Report from Study
  Country: US (occurrence: US)
  Receive Date: 20250321
  Receipt Date: 20250321
  Transmission Date: 20250409
  Serious: Yes (Other)
  Sender: GALDERMA
  Company Number: US-GALDERMA-US2025003820

PATIENT

DRUGS (4)
  1. NEMOLIZUMAB [Suspect]
     Active Substance: NEMOLIZUMAB
     Indication: Dermatitis atopic
     Route: 058
     Dates: start: 20250117, end: 20250117
  2. NEMOLIZUMAB [Suspect]
     Active Substance: NEMOLIZUMAB
     Route: 058
     Dates: start: 20250117, end: 20250117
  3. LYRICA [Concomitant]
     Active Substance: PREGABALIN
     Indication: Product used for unknown indication
     Route: 065
  4. LEVOTHYROXINE [Concomitant]
     Active Substance: LEVOTHYROXINE
     Indication: Product used for unknown indication
     Route: 065

REACTIONS (6)
  - Atrial fibrillation [Unknown]
  - Food poisoning [Unknown]
  - Vomiting [Unknown]
  - Asthenia [Unknown]
  - Headache [Unknown]
  - Rash [Unknown]

NARRATIVE: CASE EVENT DATE: 20250101
